FAERS Safety Report 19274319 (Version 1)
Quarter: 2021Q2

REPORT INFORMATION
  Report Type: Spontaneous
  Country: US (occurrence: US)
  Receive Date: 20210519
  Receipt Date: 20210519
  Transmission Date: 20210717
  Serious: Yes (Hospitalization, Other)
  Sender: FDA-Public Use
  Company Number: None

PATIENT
  Age: 34 Year
  Sex: Female

DRUGS (7)
  1. CEFDNIR [Concomitant]
  2. DEXAMETHASON [Concomitant]
     Active Substance: DEXAMETHASONE
  3. METRONIDAZOL [Concomitant]
     Active Substance: METRONIDAZOLE
  4. HYDROCO/APAP [Concomitant]
     Active Substance: ACETAMINOPHEN\HYDROCODONE
  5. ZARXIO [Suspect]
     Active Substance: FILGRASTIM-SNDZ
     Indication: NEUTROPENIA
     Dosage: ?          OTHER FREQUENCY:QD X 5D;?
     Route: 058
     Dates: start: 20201201
  6. LEVETIRACETA [Concomitant]
     Active Substance: LEVETIRACETAM
  7. MORPHINE SUL [Concomitant]
     Active Substance: MORPHINE SULFATE

REACTIONS (2)
  - Brain operation [None]
  - Seizure [None]

NARRATIVE: CASE EVENT DATE: 20210418
